APPROVED DRUG PRODUCT: PROGESTERONE
Active Ingredient: PROGESTERONE
Strength: 200MG
Dosage Form/Route: CAPSULE;ORAL
Application: A200456 | Product #002 | TE Code: AB
Applicant: SOFGEN PHARMACEUTICALS LLC
Approved: Sep 28, 2012 | RLD: No | RS: No | Type: RX